FAERS Safety Report 13142163 (Version 4)
Quarter: 2022Q2

REPORT INFORMATION
  Report Type: Report from Study
  Country: US (occurrence: US)
  Receive Date: 20170124
  Receipt Date: 20220616
  Transmission Date: 20220721
  Serious: Yes (Hospitalization, Other)
  Sender: FDA-Public Use
  Company Number: US-009507513-1701USA005616

PATIENT
  Age: 64 Year
  Sex: Female
  Weight: 60.6 kg

DRUGS (6)
  1. TEMOZOLOMIDE [Suspect]
     Active Substance: TEMOZOLOMIDE
     Indication: Glioblastoma
     Route: 048
  2. PROCHLORPERAZINE [Concomitant]
     Active Substance: PROCHLORPERAZINE
     Indication: Nausea
     Dosage: 10 MILLIGRAM, AS REQUIRED
     Route: 048
     Dates: start: 20161031
  3. PREDNISOLONE [Concomitant]
     Active Substance: PREDNISOLONE
     Dosage: 1-2 GTTS (1 %, 3 IN 1 D)
     Route: 047
     Dates: start: 20160920, end: 20160926
  4. PREDNISOLONE [Concomitant]
     Active Substance: PREDNISOLONE
     Dosage: 1-2 GTTS (1 %, 3 IN 1 D)
     Route: 047
     Dates: start: 20161004, end: 20161010
  5. PREDNISOLONE [Concomitant]
     Active Substance: PREDNISOLONE
     Dosage: 1-2 GTTS (1 %, 3 IN 1 D)
     Route: 047
     Dates: start: 20161018, end: 20161024
  6. PREDNISOLONE [Concomitant]
     Active Substance: PREDNISOLONE
     Dosage: 1-2 GTTS (1 %, 3 IN 1 D)
     Route: 047
     Dates: start: 20161129, end: 20161205

REACTIONS (2)
  - Constipation [Recovered/Resolved]
  - Urinary retention [Recovered/Resolved]

NARRATIVE: CASE EVENT DATE: 20161205
